FAERS Safety Report 8603569-6 (Version None)
Quarter: 2012Q3

REPORT INFORMATION
  Report Type: 
  Country: None (occurrence: None)
  Receive Date: 20120817
  Receipt Date: 20120813
  Transmission Date: 20120928
  Serious: Yes (Other)
  Sender: FDA-Public Use
  Company Number: PHHY2012FR051165

PATIENT
  Sex: Female

DRUGS (20)
  1. PIPERACILLIN/TAZOBACTAM [Interacting]
     Indication: BACTERAEMIA
     Dosage: 500 MG, QID
     Route: 042
     Dates: start: 20120506, end: 20120509
  2. ZOLPIDEM TARTRATE [Concomitant]
     Dosage: 10 MG, QD
  3. MOVIPREP [Concomitant]
     Dosage: 1 DF, UNK
  4. VANCOMYCIN HCL [Suspect]
     Dosage: 500 MG, BID
     Route: 042
     Dates: start: 20120506, end: 20120508
  5. NICARDIPINE HCL [Concomitant]
     Dosage: 50 MG, BID
  6. INNOHEP [Concomitant]
     Dosage: 10000 IU, UNK
  7. IMIPENEM AND CILASTATIN SODIUM [Interacting]
     Route: 042
     Dates: start: 20120507, end: 20120521
  8. ACETAMINOPHEN [Concomitant]
  9. FERROUS FUMARATE [Concomitant]
     Dosage: 1 DF, QD
  10. GENTAMICIN [Interacting]
     Indication: BACTERAEMIA
     Dates: start: 20120506, end: 20120509
  11. MINISINTROM [Interacting]
     Dates: start: 20120425
  12. AMIKACIN [Interacting]
     Dates: start: 20120507, end: 20120510
  13. NEBIVOLOL [Concomitant]
     Dosage: 0.5 DF, UNK
  14. DIGOXIN [Concomitant]
     Dosage: 1 DF, UNK
  15. AMLODIPINE BESYLATE [Concomitant]
     Dosage: 1 DF, QD
  16. POTASSIUM CHLORIDE [Concomitant]
     Dosage: 600 MG, BID
  17. ACETAMINOPHEN AND TRAMADOL HCL [Concomitant]
  18. LASIX [Concomitant]
     Dosage: 10 MG, UNK
  19. FOLIC ACID [Concomitant]
     Dosage: 1 DF, QD
  20. RAMIPRIL [Concomitant]
     Dosage: 1.25 MG, QD

REACTIONS (3)
  - INTERNATIONAL NORMALISED RATIO INCREASED [None]
  - DRUG INTERACTION [None]
  - OVERDOSE [None]
